FAERS Safety Report 7604930-9 (Version None)
Quarter: 2011Q3

REPORT INFORMATION
  Report Type: 
  Country: None (occurrence: None)
  Receive Date: 20110713
  Receipt Date: 20110707
  Transmission Date: 20111222
  Serious: Yes (Other)
  Sender: FDA-Public Use
  Company Number: US-BRISTOL-MYERS SQUIBB COMPANY-15882897

PATIENT
  Age: 60 Year
  Sex: Female

DRUGS (1)
  1. YERVOY [Suspect]
     Indication: MALIGNANT MELANOMA
     Dosage: 1 INFUSION
     Route: 042
     Dates: start: 20110624

REACTIONS (1)
  - HEADACHE [None]
